FAERS Safety Report 15493229 (Version 1)
Quarter: 2018Q4

REPORT INFORMATION
  Report Type: Report from Study
  Country: US (occurrence: US)
  Receive Date: 20181012
  Receipt Date: 20181012
  Transmission Date: 20190205
  Serious: Yes (Hospitalization, Other)
  Sender: FDA-Public Use
  Company Number: US-BRISTOL-MYERS SQUIBB COMPANY-BMS-2018-093712

PATIENT
  Age: 57 Year
  Sex: Female
  Weight: 130.7 kg

DRUGS (4)
  1. CISPLATIN. [Suspect]
     Active Substance: CISPLATIN
     Indication: BREAST CANCER METASTATIC
     Dosage: 60 MG/M2, Q3WK
     Route: 042
     Dates: start: 20180516, end: 20180726
  2. NIVOLUMAB [Suspect]
     Active Substance: NIVOLUMAB
     Indication: BREAST CANCER METASTATIC
     Dosage: 360 MG, Q3WK
     Route: 065
     Dates: start: 20180519, end: 20180816
  3. ROMIDEPSIN. [Suspect]
     Active Substance: ROMIDEPSIN
     Indication: BREAST CANCER METASTATIC
     Dosage: 12 MG/M2, 2 WEEKS ON AND 1 WEEK OFF
     Route: 042
     Dates: start: 20180517, end: 20180823
  4. ELIQUIS [Concomitant]
     Active Substance: APIXABAN
     Indication: PULMONARY EMBOLISM
     Dosage: UNK
     Route: 065

REACTIONS (5)
  - Mucosal inflammation [Unknown]
  - Renal failure [Unknown]
  - Acute respiratory failure [Unknown]
  - Pneumonia [Unknown]
  - Atrial fibrillation [Unknown]

NARRATIVE: CASE EVENT DATE: 20180919
